FAERS Safety Report 9248732 (Version 1)
Quarter: 2013Q1

REPORT INFORMATION
  Report Type: Spontaneous
  Country: US (occurrence: None)
  Receive Date: 20121120
  Receipt Date: 20121120
  Transmission Date: 20140127
  Serious: No
  Sender: FDA-Public Use
  Company Number: 1000038385

PATIENT
  Age: 79 Year
  Sex: Male

DRUGS (4)
  1. VIIBRYD (VILAZODONE) (10 MILLIGRAM, TABLETS) [Suspect]
     Indication: DEPRESSION
     Dosage: 10 MG (10 MG, 1 IN 1 D), ORAL
     Route: 048
     Dates: start: 20120820, end: 20120826
  2. QUINAPRIL (QUINAPRIL) (QUINAPRIL) [Concomitant]
  3. METFORMIN (METFORMIN) (METFORMIN) [Concomitant]
  4. JANUVIA (SITAGLIPTIN PHOSPHATE) (SITAGLIPTIN PHOSPHATE) [Concomitant]

REACTIONS (2)
  - Insomnia [None]
  - Anxiety [None]
